FAERS Safety Report 4309903-X (Version None)
Quarter: 2004Q1

REPORT INFORMATION
  Report Type: 
  Country: None (occurrence: None)
  Receive Date: 20040303
  Receipt Date: 20040115
  Transmission Date: 20041129
  Serious: No
  Sender: FDA-Public Use
  Company Number: US-BRISTOL-MYERS SQUIBB COMPANY-12485041

PATIENT
  Sex: Female
  Weight: 41 kg

DRUGS (2)
  1. ABILIFY [Suspect]
  2. EFFEXOR [Concomitant]

REACTIONS (1)
  - WEIGHT INCREASED [None]
